FAERS Safety Report 9959374 (Version 2)
Quarter: 2014Q1

REPORT INFORMATION
  Report Type: Report from Study
  Country: US (occurrence: US)
  Receive Date: 20140305
  Receipt Date: 20140305
  Transmission Date: 20141002
  Serious: No
  Sender: FDA-Public Use
  Company Number: US-ABBVIE-13P-163-1041651-00

PATIENT
  Age: 47 Year
  Sex: Male
  Weight: 71.28 kg

DRUGS (5)
  1. HUMIRA [Suspect]
     Indication: COLITIS ULCERATIVE
     Dates: start: 20130109, end: 20130109
  2. HUMIRA [Suspect]
     Indication: CROHN^S DISEASE
  3. PRILOSEC [Concomitant]
     Indication: GASTROOESOPHAGEAL REFLUX DISEASE
  4. PRILOSEC [Concomitant]
     Indication: HIATUS HERNIA
  5. SYMBICORT INHALER [Concomitant]
     Indication: BRONCHIECTASIS

REACTIONS (1)
  - Drug ineffective [Recovering/Resolving]
